FAERS Safety Report 5517141-8 (Version None)
Quarter: 2007Q4

REPORT INFORMATION
  Report Type: 
  Country: None (occurrence: None)
  Receive Date: 20071114
  Receipt Date: 20071109
  Transmission Date: 20080405
  Serious: Yes (Hospitalization)
  Sender: FDA-Public Use
  Company Number: B0493384A

PATIENT
  Age: 37 Year
  Sex: Female
  Weight: 50 kg

DRUGS (9)
  1. PAXIL [Suspect]
     Indication: DEPRESSION
     Route: 048
     Dates: start: 20070309
  2. DIAZEPAM [Concomitant]
     Indication: DEPRESSION
     Dosage: 6MG PER DAY
     Route: 048
     Dates: start: 20070309
  3. DIAZEPAM [Concomitant]
     Dosage: 72MG PER DAY
     Route: 048
     Dates: start: 20071028, end: 20071028
  4. LENDORMIN [Concomitant]
     Indication: INSOMNIA
     Dosage: .25MG PER DAY
     Route: 048
     Dates: start: 20070309
  5. LENDORMIN [Concomitant]
     Dosage: 7MG PER DAY
     Route: 048
     Dates: start: 20071028, end: 20071028
  6. DEPAS [Concomitant]
     Dosage: .5MG PER DAY
     Route: 048
  7. DEPAS [Concomitant]
     Dosage: 7MG PER DAY
     Route: 048
     Dates: start: 20071028, end: 20071028
  8. CHLORDIAZEPOXIDE [Concomitant]
     Dosage: 10MG TWICE PER DAY
     Route: 048
  9. CHLORDIAZEPOXIDE [Concomitant]
     Dosage: 280MG PER DAY
     Route: 048
     Dates: start: 20071028, end: 20071028

REACTIONS (3)
  - INTENTIONAL OVERDOSE [None]
  - SELF INJURIOUS BEHAVIOUR [None]
  - SUICIDE ATTEMPT [None]
